FAERS Safety Report 9422988 (Version 6)
Quarter: 2013Q4

REPORT INFORMATION
  Report Type: Report from Study
  Country: GB (occurrence: GB)
  Receive Date: 20130726
  Receipt Date: 20131016
  Transmission Date: 20140711
  Serious: Yes (Other)
  Sender: FDA-Public Use
  Company Number: GB-VERTEX PHARMACEUTICALS INC-2013-008273

PATIENT
  Age: 45 Year
  Sex: Male

DRUGS (3)
  1. VX-950 (TELAPREVIR) [Suspect]
     Indication: HEPATITIS C
     Dosage: 750 MG, TID, TABLET
     Route: 048
     Dates: start: 20130623, end: 20130915
  2. PEG INTERFERON [Suspect]
     Indication: HEPATITIS C
     Dosage: UNK, QW
     Route: 058
     Dates: start: 20130623
  3. RIBAVIRIN [Suspect]
     Indication: HEPATITIS C
     Dosage: UNK UNK, BID
     Route: 048
     Dates: start: 20130623

REACTIONS (18)
  - Rash [Recovered/Resolved]
  - Dizziness [Unknown]
  - Decreased appetite [Unknown]
  - Loss of libido [Unknown]
  - Palpitations [Unknown]
  - Depression [Unknown]
  - Myalgia [Unknown]
  - Influenza like illness [Unknown]
  - Abdominal pain upper [Unknown]
  - Malaise [Unknown]
  - Fatigue [Not Recovered/Not Resolved]
  - Poor quality sleep [Not Recovered/Not Resolved]
  - Constipation [Not Recovered/Not Resolved]
  - Headache [Unknown]
  - Pain [Not Recovered/Not Resolved]
  - Dry skin [Unknown]
  - Pruritus generalised [Unknown]
  - Vomiting [Not Recovered/Not Resolved]
